FAERS Safety Report 9615442 (Version 1)
Quarter: 2013Q4

REPORT INFORMATION
  Report Type: Spontaneous
  Country: US (occurrence: US)
  Receive Date: 20131011
  Receipt Date: 20131011
  Transmission Date: 20140711
  Serious: No
  Sender: FDA-Public Use
  Company Number: US-009507513-1309USA010964

PATIENT
  Sex: Female

DRUGS (1)
  1. COSOPT PF [Suspect]
     Route: 047

REACTIONS (1)
  - Adverse event [Unknown]
